FAERS Safety Report 6338490-X (Version None)
Quarter: 2009Q3

REPORT INFORMATION
  Report Type: 
  Country: None (occurrence: None)
  Receive Date: 20090901
  Receipt Date: 20090821
  Transmission Date: 20100115
  Serious: Yes (Hospitalization)
  Sender: FDA-Public Use
  Company Number: GXKR2009GR09485

PATIENT
  Age: 62 Year
  Sex: Male

DRUGS (1)
  1. ASPIRIN [Suspect]
     Dosage: 100 MG, QD

REACTIONS (5)
  - HAEMODYNAMIC INSTABILITY [None]
  - HAEMOGLOBIN DECREASED [None]
  - HYPOVOLAEMIC SHOCK [None]
  - PAIN [None]
  - PERIRENAL HAEMATOMA [None]
